FAERS Safety Report 14585382 (Version 1)
Quarter: 2018Q1

REPORT INFORMATION
  Report Type: Spontaneous
  Country: ES (occurrence: ES)
  Receive Date: 20180301
  Receipt Date: 20180301
  Transmission Date: 20180509
  Serious: Yes (Hospitalization)
  Sender: FDA-Public Use
  Company Number: ES-AXELLIA-001419

PATIENT
  Age: 73 Year
  Sex: Female

DRUGS (3)
  1. LEVOFLOXACIN/LEVOFLOXACIN MESYLATE [Suspect]
     Active Substance: LEVOFLOXACIN
     Indication: ANTIBIOTIC THERAPY
     Dosage: ALSO RECEIVED INTRAVENOUSLY (SAME DOSE)
     Route: 048
  2. VANCOMYCIN [Suspect]
     Active Substance: VANCOMYCIN
     Indication: ANTIBIOTIC THERAPY
     Route: 042
  3. RIFAMPICIN [Suspect]
     Active Substance: RIFAMPIN
     Indication: ANTIBIOTIC THERAPY
     Dosage: ALSO RECEIVED INTRAVENOUSLY (SAME DOSE)
     Route: 048

REACTIONS (1)
  - Pancytopenia [Recovered/Resolved]
